FAERS Safety Report 6552253-1 (Version None)
Quarter: 2010Q1

REPORT INFORMATION
  Report Type: 
  Country: None (occurrence: None)
  Receive Date: 20100121
  Receipt Date: 20100106
  Transmission Date: 20100710
  Serious: Yes (Death, Other)
  Sender: FDA-Public Use
  Company Number: KV201000011

PATIENT
  Age: 57 Year
  Sex: Female

DRUGS (18)
  1. MORPHINE SULFATE [Suspect]
     Indication: DRUG USE FOR UNKNOWN INDICATION
     Dosage: ORAL
     Route: 048
     Dates: start: 20080515
  2. MORPHINE SULFATE [Suspect]
     Indication: DRUG USE FOR UNKNOWN INDICATION
     Dosage: ORAL
     Route: 048
     Dates: start: 20080601
  3. METFORMIN HCL [Concomitant]
  4. PRAVASTATIN [Concomitant]
  5. FENOFIBRATE [Concomitant]
  6. ATENOLOL [Concomitant]
  7. RANITIDINE [Concomitant]
  8. FOSINOPRIL SODIUM [Concomitant]
  9. NOVOLOG [Concomitant]
  10. LANTUS [Concomitant]
  11. ACTOS /01460201/ (PIOGLITAZONE) [Concomitant]
  12. WARFARIN SODIUM [Concomitant]
  13. FOLIC ACID [Concomitant]
  14. OMEPRAZOLE [Concomitant]
  15. ZOLPIDEM [Concomitant]
  16. GABAPENTIN [Concomitant]
  17. HYDROCODONE W/APAP (HYDROCODONE, PARACETAMOL) [Concomitant]
  18. OXYCODONE HCL ER (OXYCODONE HYDROCHLORIDE) [Concomitant]

REACTIONS (6)
  - BRAIN INJURY [None]
  - CARDIOPULMONARY FAILURE [None]
  - CONVULSION [None]
  - LOSS OF CONSCIOUSNESS [None]
  - LUNG CANCER METASTATIC [None]
  - STATUS EPILEPTICUS [None]
